FAERS Safety Report 9035555 (Version 1)
Quarter: 2013Q1

REPORT INFORMATION
  Report Type: Report from Study
  Country: US (occurrence: US)
  Receive Date: 20130129
  Receipt Date: 20130129
  Transmission Date: 20140127
  Serious: No
  Sender: FDA-Public Use
  Company Number: US-ABBOTT-12P-163-0905313-00

PATIENT
  Sex: Female
  Weight: 106.69 kg

DRUGS (2)
  1. HUMIRA 40 MG/0.8 ML PEN [Suspect]
     Indication: RHEUMATOID ARTHRITIS
     Dates: start: 201201
  2. METHOTREXATE [Concomitant]
     Indication: RHEUMATOID ARTHRITIS

REACTIONS (5)
  - Vomiting [Unknown]
  - Diarrhoea [Unknown]
  - Viral infection [Unknown]
  - Food poisoning [Unknown]
  - Skin lesion [Not Recovered/Not Resolved]
